FAERS Safety Report 24533900 (Version 3)
Quarter: 2024Q4

REPORT INFORMATION
  Report Type: Report from Study
  Country: CA (occurrence: CA)
  Receive Date: 20241022
  Receipt Date: 20241203
  Transmission Date: 20250114
  Serious: Yes (Hospitalization)
  Sender: ULTRAGENYX PHARMACEUTICAL
  Company Number: CA-ULTRAGENYX PHARMACEUTICAL INC.-CA-UGX-24-01885

PATIENT
  Sex: Male

DRUGS (2)
  1. DOJOLVI [Suspect]
     Active Substance: TRIHEPTANOIN
     Indication: Mitochondrial cardiomyopathy
     Dosage: 10 MILLILITER, QID
     Route: 048
     Dates: start: 20240907
  2. DOJOLVI [Suspect]
     Active Substance: TRIHEPTANOIN
     Dosage: 5 MILLILITER, QID
     Route: 048

REACTIONS (5)
  - Diarrhoea [Unknown]
  - Hospitalisation [Unknown]
  - Abdominal discomfort [Unknown]
  - Abdominal pain upper [Unknown]
  - Off label use [Unknown]

NARRATIVE: CASE EVENT DATE: 20240101
